FAERS Safety Report 9621362 (Version 1)
Quarter: 2013Q4

REPORT INFORMATION
  Report Type: Spontaneous
  Country: US (occurrence: US)
  Receive Date: 20131015
  Receipt Date: 20131015
  Transmission Date: 20140711
  Serious: Yes (Other)
  Sender: FDA-Public Use
  Company Number: US-PFIZER INC-2013292577

PATIENT
  Sex: Female

DRUGS (1)
  1. XELJANZ [Suspect]
     Indication: RHEUMATOID ARTHRITIS
     Dosage: 2 DF, 2X/DAY
     Route: 048

REACTIONS (5)
  - Rheumatoid arthritis [Unknown]
  - Urticaria [Recovered/Resolved]
  - Eye pruritus [Recovered/Resolved]
  - Dysuria [Recovered/Resolved]
  - Headache [Recovered/Resolved]
